FAERS Safety Report 8142234-9 (Version None)
Quarter: 2012Q1

REPORT INFORMATION
  Report Type: 
  Country: None (occurrence: None)
  Receive Date: 20120216
  Receipt Date: 20120206
  Transmission Date: 20120608
  Serious: Yes (Death)
  Sender: FDA-Public Use
  Company Number: FR-BRACCO-000757

PATIENT
  Sex: Male

DRUGS (9)
  1. HYDROCODONE [Concomitant]
  2. ISENTRESS [Concomitant]
     Indication: HIV TEST POSITIVE
  3. ZOLPIDEM [Concomitant]
  4. ZIAGEN [Concomitant]
     Indication: HIV TEST POSITIVE
  5. MULTIHANCE [Suspect]
     Indication: HEPATIC NEOPLASM MALIGNANT
     Dosage: STRENGTH: 0.5 MMOL/ML
     Route: 042
     Dates: start: 20120127, end: 20120127
  6. MULTIHANCE [Suspect]
     Indication: LIVER SCAN
     Dosage: STRENGTH: 0.5 MMOL/ML
     Route: 042
     Dates: start: 20120127, end: 20120127
  7. TUSSIDANE [Concomitant]
     Indication: BRONCHITIS
  8. SUSTIVA [Concomitant]
     Indication: HIV TEST POSITIVE
  9. AUGMENTIN '125' [Concomitant]
     Indication: BRONCHITIS

REACTIONS (2)
  - ANAPHYLACTIC REACTION [None]
  - CARDIAC ARREST [None]
